FAERS Safety Report 11790684 (Version 2)
Quarter: 2016Q1

REPORT INFORMATION
  Report Type: Spontaneous
  Country: US (occurrence: US)
  Receive Date: 20151201
  Receipt Date: 20160112
  Transmission Date: 20160525
  Serious: No
  Sender: FDA-Public Use
  Company Number: US-PFIZER INC-2015390451

PATIENT
  Age: 42 Year
  Sex: Female

DRUGS (1)
  1. ADVIL SINUS CONGESTION AND PAIN [Suspect]
     Active Substance: IBUPROFEN\PHENYLEPHRINE HYDROCHLORIDE
     Indication: SINUSITIS
     Dosage: UNK

REACTIONS (2)
  - Product use issue [Unknown]
  - Pre-existing condition improved [Unknown]
